FAERS Safety Report 13763148 (Version 1)
Quarter: 2017Q3

REPORT INFORMATION
  Report Type: Spontaneous
  Country: US (occurrence: US)
  Receive Date: 20170718
  Receipt Date: 20170718
  Transmission Date: 20171127
  Serious: Yes (Death, Hospitalization)
  Sender: FDA-Public Use
  Company Number: US-BIOVITRUM-2017US0671

PATIENT
  Sex: Female

DRUGS (5)
  1. KINERET [Suspect]
     Active Substance: ANAKINRA
     Indication: STILL^S DISEASE
  2. BACTRIM [Concomitant]
     Active Substance: SULFAMETHOXAZOLE\TRIMETHOPRIM
  3. MYCOPHENOLATE [Concomitant]
     Active Substance: MYCOPHENOLIC ACID
  4. CYCLOSPORINE. [Concomitant]
     Active Substance: CYCLOSPORINE
  5. CORTICOSTEROIDS [Concomitant]
     Active Substance: CORTICOSTEROID NOS

REACTIONS (9)
  - Histiocytosis haematophagic [Fatal]
  - Rash pruritic [Recovering/Resolving]
  - Clubbing [Recovering/Resolving]
  - Inflammation [Recovering/Resolving]
  - Tachypnoea [Recovered/Resolved]
  - Alveolar proteinosis [Unknown]
  - Eosinophilia [Recovering/Resolving]
  - Erythema [Recovering/Resolving]
  - Respiratory failure [Fatal]
